FAERS Safety Report 8045725-4 (Version None)
Quarter: 2012Q1

REPORT INFORMATION
  Report Type: 
  Country: None (occurrence: None)
  Receive Date: 20120113
  Receipt Date: 20120105
  Transmission Date: 20120608
  Serious: Yes (Other)
  Sender: FDA-Public Use
  Company Number: PHHY2010FR52295

PATIENT
  Age: 39 Year
  Sex: Female
  Weight: 54 kg

DRUGS (4)
  1. CLOMIPRAMINE HCL [Concomitant]
     Indication: DYSTHYMIC DISORDER
     Dosage: 50 MG DAILY
     Dates: start: 19970101, end: 20100714
  2. HALIDOL [Concomitant]
     Dosage: 0.5 MG, QD
     Dates: start: 19970101, end: 20100714
  3. TEGRETOL [Suspect]
     Indication: BIPOLAR DISORDER
     Dosage: 400 MG, QD
     Route: 048
     Dates: start: 19970101, end: 20100714
  4. CLOMIPRAMINE HCL [Concomitant]
     Dosage: 75 MG, UNK

REACTIONS (4)
  - ANXIETY [None]
  - GESTATIONAL DIABETES [None]
  - PREMATURE DELIVERY [None]
  - MATERNAL EXPOSURE DURING PREGNANCY [None]
